FAERS Safety Report 6426847-8 (Version None)
Quarter: 2009Q4

REPORT INFORMATION
  Report Type: 
  Country: None (occurrence: None)
  Receive Date: 20091104
  Receipt Date: 20091027
  Transmission Date: 20100525
  Serious: Yes (Death)
  Sender: FDA-Public Use
  Company Number: JP-BAYER-200913909BYL

PATIENT
  Age: 62 Year
  Sex: Male

DRUGS (4)
  1. NEXAVAR [Suspect]
     Indication: HEPATIC NEOPLASM MALIGNANT
     Dosage: TOTAL DAILY DOSE: 800 MG  UNIT DOSE: 200 MG
     Route: 048
     Dates: start: 20090821, end: 20091006
  2. OXYCONTIN [Concomitant]
     Route: 048
     Dates: start: 20090702
  3. OXINORM [Concomitant]
     Route: 048
     Dates: start: 20090702
  4. ZOMETA [Concomitant]
     Route: 041
     Dates: start: 20090817

REACTIONS (2)
  - HEPATIC NEOPLASM MALIGNANT [None]
  - HYPERTENSION [None]
